FAERS Safety Report 10961305 (Version 2)
Quarter: 2015Q2

REPORT INFORMATION
  Report Type: Spontaneous
  Country: FR (occurrence: None)
  Receive Date: 20150325
  Receipt Date: 20150403
  Transmission Date: 20150821
  Serious: Yes (Life-Threatening)
  Sender: FDA-Public Use
  Company Number: 2794226

PATIENT
  Age: 30 Year
  Sex: Female

DRUGS (11)
  1. PROPOFOL. [Suspect]
     Active Substance: PROPOFOL
     Indication: ANAESTHESIA
     Dosage: 200 MG MILLIGRAM(S), UNKNOWN, UNKNOWN?UNKNOWN 8:14 AM - UNKNOWN
  2. BROMAZEPAM [Concomitant]
     Active Substance: BROMAZEPAM
  3. SEVOFLURANE. [Concomitant]
     Active Substance: SEVOFLURANE
     Indication: ANAESTHESIA
     Dosage: SINGLE
  4. SUFENTANIL [Suspect]
     Active Substance: SUFENTANIL
     Indication: ANAESTHESIA
     Dosage: 25 UG, MICROGAM(S) , 8:14
  5. NEFOPAM [Suspect]
     Active Substance: NEFOPAM
     Indication: PRODUCT USED FOR UNKNOWN INDICATION
     Dosage: 20 MG MILLIGRAM(S) , 8:50
  6. MIDAZOLAM [Suspect]
     Active Substance: MIDAZOLAM\MIDAZOLAM HYDROCHLORIDE
     Indication: ANAESTHESIA
     Dosage: 2.5 MG MILLIGRAM(S) UNKNOWN?UNKNOWN 8:14 AM - UNKNOWN
  7. CEFAZOLIN [Concomitant]
     Active Substance: CEFAZOLIN
  8. MIDAZOLAM [Suspect]
     Active Substance: MIDAZOLAM\MIDAZOLAM HYDROCHLORIDE
     Indication: PREMEDICATION
     Dosage: 2.5 MG MILLIGRAM(S) UNKNOWN?UNKNOWN 8:14 AM - UNKNOWN
  9. KETAMINE [Suspect]
     Active Substance: KETAMINE
     Indication: ANAESTHESIA
     Dosage: 25 MG MILLIGRAM(S),  8:14 AM
  10. DROPERIDOL. [Suspect]
     Active Substance: DROPERIDOL
     Indication: PRODUCT USED FOR UNKNOWN INDICATION
     Dosage: 1.25 MG MILLIGRAM(S), 8:19
  11. DEXAMETHASONE. [Concomitant]
     Active Substance: DEXAMETHASONE

REACTIONS (8)
  - Drug interaction [None]
  - Hypokalaemia [None]
  - Blood magnesium decreased [None]
  - Torsade de pointes [None]
  - Ventricular fibrillation [None]
  - Cardiac arrest [None]
  - Blood calcium decreased [None]
  - Long QT syndrome [None]
